FAERS Safety Report 19086614 (Version 1)
Quarter: 2021Q2

REPORT INFORMATION
  Report Type: Spontaneous
  Country: JP (occurrence: JP)
  Receive Date: 20210402
  Receipt Date: 20210402
  Transmission Date: 20210717
  Serious: Yes (Other)
  Sender: FDA-Public Use
  Company Number: JP-ELI_LILLY_AND_COMPANY-JP202103012053AA

PATIENT
  Age: 70 Year
  Sex: Female

DRUGS (1)
  1. OLANZAPINE. [Suspect]
     Active Substance: OLANZAPINE
     Indication: DEPRESSIVE SYMPTOM
     Route: 065

REACTIONS (3)
  - Cerebral infarction [Unknown]
  - Normal pressure hydrocephalus [Recovering/Resolving]
  - Chorea [Recovering/Resolving]
